FAERS Safety Report 6237146-1 (Version None)
Quarter: 2009Q2

REPORT INFORMATION
  Report Type: 
  Country: None (occurrence: None)
  Receive Date: 20090619
  Receipt Date: 20090428
  Transmission Date: 20091009
  Serious: No
  Sender: FDA-Public Use
  Company Number: US-ASTRAZENECA-2009UW10599

PATIENT
  Age: 71 Year
  Sex: Male
  Weight: 94.3 kg

DRUGS (5)
  1. SYMBICORT [Suspect]
     Indication: ASTHMA
     Route: 055
  2. PLAVIX [Concomitant]
  3. ACTOS [Concomitant]
     Indication: DIABETES MELLITUS
  4. COMBIVENT [Concomitant]
     Indication: ASTHMA
  5. PRANDIN [Concomitant]
     Indication: DIABETES MELLITUS

REACTIONS (1)
  - POLLAKIURIA [None]
